FAERS Safety Report 5648352-9 (Version None)
Quarter: 2008Q1

REPORT INFORMATION
  Report Type: 
  Country: None (occurrence: None)
  Receive Date: 20080304
  Receipt Date: 20080219
  Transmission Date: 20080703
  Serious: Yes (Death)
  Sender: FDA-Public Use
  Company Number: GB-TEVA-2005-CZ-00416

PATIENT
  Age: 28 Year
  Sex: Female

DRUGS (3)
  1. DIAZEPAM TAB [Suspect]
  2. AMITRIPTYLINE HCL [Suspect]
     Indication: DEPRESSION
     Route: 048
  3. MORPHINE [Suspect]

REACTIONS (3)
  - DEATH [None]
  - DRUG INTERACTION [None]
  - INTENTIONAL DRUG MISUSE [None]
